FAERS Safety Report 10955183 (Version 1)
Quarter: 2015Q1

REPORT INFORMATION
  Report Type: Spontaneous
  Country: ES (occurrence: ES)
  Receive Date: 20150326
  Receipt Date: 20150326
  Transmission Date: 20150721
  Serious: Yes (Life-Threatening, Disabling, Other)
  Sender: FDA-Public Use
  Company Number: ES-ROCHE-1555575

PATIENT
  Sex: Male

DRUGS (2)
  1. XOLAIR [Suspect]
     Active Substance: OMALIZUMAB
     Indication: CHRONIC SPONTANEOUS URTICARIA
     Route: 042
     Dates: start: 201501, end: 201501
  2. XOLAIR [Suspect]
     Active Substance: OMALIZUMAB
     Indication: ANGIOEDEMA
     Route: 042
     Dates: start: 201312

REACTIONS (9)
  - Vertebrobasilar insufficiency [Not Recovered/Not Resolved]
  - Cerebrovascular accident [Unknown]
  - Thrombosis [Unknown]
  - Protein C increased [Unknown]
  - Product use issue [Unknown]
  - Vertebral artery dissection [Unknown]
  - Protein S decreased [Unknown]
  - Incorrect route of drug administration [Unknown]
  - Cardiolipin antibody positive [Unknown]

NARRATIVE: CASE EVENT DATE: 201408
